FAERS Safety Report 12314862 (Version 1)
Quarter: 2016Q2

REPORT INFORMATION
  Report Type: Spontaneous
  Country: None (occurrence: None)
  Receive Date: 20160428
  Receipt Date: 20160428
  Transmission Date: 20160815
  Serious: Yes (Hospitalization)
  Sender: FDA-Public Use
  Company Number: US-BRAINTREE LABORATORIES-160297

PATIENT
  Age: 74 Year
  Sex: Male

DRUGS (1)
  1. HALFLYTELY AND BISACODYL BOWEL PREP WITH FLAVOR PACKS [Suspect]
     Active Substance: BISACODYL\POLYETHYLENE GLYCOL 3350\POTASSIUM CHLORIDE\SODIUM BICARBONATE\SODIUM CHLORIDE
     Indication: OFF LABEL USE
     Route: 065

REACTIONS (1)
  - Angioedema [None]
